FAERS Safety Report 25575004 (Version 2)
Quarter: 2025Q3

REPORT INFORMATION
  Report Type: Spontaneous
  Country: CN (occurrence: CN)
  Receive Date: 20250718
  Receipt Date: 20250821
  Transmission Date: 20251021
  Serious: Yes (Other)
  Sender: NOVO NORDISK
  Company Number: CN-NOVOPROD-1466454

PATIENT
  Age: 64 Year
  Sex: Female
  Weight: 60 kg

DRUGS (1)
  1. RYZODEG 70/30 [Suspect]
     Active Substance: INSULIN ASPART\INSULIN DEGLUDEC
     Indication: Type 2 diabetes mellitus

REACTIONS (6)
  - Blindness [Unknown]
  - Retinal haemorrhage [Unknown]
  - Maculopathy [Unknown]
  - Skin ulcer [Unknown]
  - Anaemia [Unknown]
  - Product storage error [Unknown]
